FAERS Safety Report 6136067-2 (Version None)
Quarter: 2009Q1

REPORT INFORMATION
  Report Type: 
  Country: None (occurrence: None)
  Receive Date: 20090330
  Receipt Date: 20090325
  Transmission Date: 20090719
  Serious: Yes (Hospitalization)
  Sender: FDA-Public Use
  Company Number: US-WYE-H07201708

PATIENT
  Sex: Female
  Weight: 86.26 kg

DRUGS (1)
  1. TYGACIL [Suspect]
     Indication: DIABETIC FOOT INFECTION
     Dosage: UNKNOWN
     Route: 042

REACTIONS (4)
  - ASTHENIA [None]
  - BLOOD TRIGLYCERIDES DECREASED [None]
  - CONFUSIONAL STATE [None]
  - HYPOGLYCAEMIA [None]
